FAERS Safety Report 6600806-4 (Version None)
Quarter: 2010Q1

REPORT INFORMATION
  Report Type: 
  Country: None (occurrence: None)
  Receive Date: 20100223
  Receipt Date: 20100223
  Transmission Date: 20100710
  Serious: Yes (Other)
  Sender: FDA-Public Use
  Company Number: None

PATIENT
  Age: 50 Year
  Sex: Female
  Weight: 58.9676 kg

DRUGS (1)
  1. SERTRALINE HYDROCHLORIDE [Suspect]
     Indication: DYSTHYMIC DISORDER
     Dosage: 50MG QAM + 25MG QPM BID PO
     Route: 048
     Dates: start: 20070401, end: 20090201

REACTIONS (7)
  - BRUXISM [None]
  - EAR PAIN [None]
  - JOINT CONTRACTURE [None]
  - SINUS CONGESTION [None]
  - SINUS DISORDER [None]
  - SWELLING [None]
  - TOOTH FRACTURE [None]
